FAERS Safety Report 5788263-1 (Version None)
Quarter: 2008Q2

REPORT INFORMATION
  Report Type: 
  Country: None (occurrence: None)
  Receive Date: 20080625
  Receipt Date: 20080613
  Transmission Date: 20081010
  Serious: Yes (Hospitalization)
  Sender: FDA-Public Use
  Company Number: AU-PFIZER INC-2006130982

PATIENT
  Sex: Male
  Weight: 98 kg

DRUGS (7)
  1. MEDROL [Suspect]
     Indication: MULTIPLE SCLEROSIS
     Route: 048
  2. AMITRIPTYLINE HCL [Concomitant]
     Indication: SENSORY DISTURBANCE
     Route: 048
  3. LIPEX [Concomitant]
     Indication: HYPERLIPIDAEMIA
     Dosage: DAILY DOSE:20MG-FREQ:DAILY
     Route: 048
  4. LOSEC I.V. [Concomitant]
     Indication: GASTROOESOPHAGEAL REFLUX DISEASE
     Dosage: DAILY DOSE:40MG-FREQ:DAILY
     Route: 048
  5. FOSAMAX [Concomitant]
  6. INTERFERON BETA-1A [Concomitant]
  7. ALBUTEROL [Concomitant]

REACTIONS (1)
  - DIVERTICULITIS [None]
